FAERS Safety Report 8954987 (Version 2)
Quarter: 2013Q1

REPORT INFORMATION
  Report Type: Report from Study
  Country: US (occurrence: US)
  Receive Date: 20121207
  Receipt Date: 20130320
  Transmission Date: 20140127
  Serious: Yes (Hospitalization)
  Sender: FDA-Public Use
  Company Number: US-AMGEN-USACT2012076715

PATIENT
  Age: 51 Year
  Sex: Female

DRUGS (3)
  1. CINACALCET HCL [Suspect]
     Indication: HYPERPARATHYROIDISM SECONDARY
     Dosage: UNK
     Route: 048
     Dates: start: 20120228
  2. LORTAB [Concomitant]
  3. XANAX [Concomitant]

REACTIONS (1)
  - Pyelonephritis [Recovered/Resolved]
